FAERS Safety Report 7280866-0 (Version None)
Quarter: 2011Q1

REPORT INFORMATION
  Report Type: 
  Country: None (occurrence: None)
  Receive Date: 20110208
  Receipt Date: 20110202
  Transmission Date: 20110831
  Serious: No
  Sender: FDA-Public Use
  Company Number: US-PFIZER INC-2011024354

PATIENT
  Sex: Female

DRUGS (2)
  1. ZMAX [Suspect]
     Indication: SINUSITIS
     Dosage: 2 G, DAILY
     Route: 048
     Dates: start: 20110201
  2. NEXIUM [Concomitant]
     Dosage: UNK

REACTIONS (3)
  - HEAD INJURY [None]
  - NAUSEA [None]
  - DIZZINESS [None]
